FAERS Safety Report 9344379 (Version 1)
Quarter: 2013Q2

REPORT INFORMATION
  Report Type: Spontaneous
  Country: IT (occurrence: IT)
  Receive Date: 20130612
  Receipt Date: 20130612
  Transmission Date: 20140414
  Serious: Yes (Hospitalization)
  Sender: FDA-Public Use
  Company Number: IT-PFIZER INC-2013177763

PATIENT
  Age: 37 Year
  Sex: Female

DRUGS (1)
  1. NORVASC [Suspect]
     Dosage: 56 DF, TOTAL DOSE
     Route: 048
     Dates: start: 20130418, end: 20130418

REACTIONS (3)
  - Overdose [Unknown]
  - Suicide attempt [Unknown]
  - Sopor [Unknown]
